FAERS Safety Report 5900782-3 (Version None)
Quarter: 2008Q3

REPORT INFORMATION
  Report Type: 
  Country: None (occurrence: None)
  Receive Date: 20080929
  Receipt Date: 20080918
  Transmission Date: 20090109
  Serious: Yes (Other)
  Sender: FDA-Public Use
  Company Number: CA-JNJFOC-20080904802

PATIENT
  Age: 59 Year
  Sex: Male

DRUGS (3)
  1. REMICADE [Suspect]
     Route: 042
  2. REMICADE [Suspect]
     Indication: DRUG USE FOR UNKNOWN INDICATION
     Route: 042
  3. BENADRYL [Concomitant]
     Indication: PREMEDICATION

REACTIONS (2)
  - PROSTATE CANCER [None]
  - RASH PRURITIC [None]
